FAERS Safety Report 7610431-4 (Version None)
Quarter: 2011Q3

REPORT INFORMATION
  Report Type: 
  Country: None (occurrence: None)
  Receive Date: 20110715
  Receipt Date: 20110712
  Transmission Date: 20111222
  Serious: Yes (Other)
  Sender: FDA-Public Use
  Company Number: US-PFIZER INC-2011157750

PATIENT
  Sex: Female
  Weight: 83.9 kg

DRUGS (2)
  1. LYRICA [Suspect]
     Indication: POSTOPERATIVE CARE
     Dosage: UNK, 2X/DAY
     Route: 048
     Dates: start: 20110524, end: 20110527
  2. BENICAR [Concomitant]
     Indication: HYPERTENSION
     Dosage: UNK

REACTIONS (4)
  - SWELLING FACE [None]
  - HYPERSENSITIVITY [None]
  - OEDEMA MOUTH [None]
  - OEDEMA PERIPHERAL [None]
